FAERS Safety Report 7785477-6 (Version None)
Quarter: 2011Q3

REPORT INFORMATION
  Report Type: 
  Country: None (occurrence: None)
  Receive Date: 20110929
  Receipt Date: 20110929
  Transmission Date: 20111222
  Serious: Yes (Other)
  Sender: FDA-Public Use
  Company Number: PHHO2011GR01504

PATIENT
  Sex: Female
  Weight: 37 kg

DRUGS (5)
  1. ILARIS [Suspect]
     Dosage: CODE NOT BROKEN
     Route: 058
     Dates: start: 20110111, end: 20110111
  2. ILARIS [Suspect]
     Indication: JUVENILE ARTHRITIS
     Dosage: UNK
     Route: 058
     Dates: start: 20101214, end: 20101214
  3. ILARIS [Suspect]
     Dosage: CODE NOT BROKEN
     Route: 058
     Dates: start: 20110208, end: 20110208
  4. ILARIS [Suspect]
     Dosage: 150 MG, QW4
     Route: 058
     Dates: start: 20101116, end: 20101214
  5. METHOTREXATE [Suspect]
     Indication: JUVENILE ARTHRITIS
     Dosage: UNK
     Dates: start: 20060104, end: 20110121

REACTIONS (5)
  - COUGH [None]
  - HEPATOTOXICITY [None]
  - UPPER RESPIRATORY TRACT INFECTION [None]
  - HYPERTRANSAMINASAEMIA [None]
  - PHARYNGITIS [None]
